FAERS Safety Report 10427954 (Version 1)
Quarter: 2014Q3

REPORT INFORMATION
  Report Type: Spontaneous
  Country: US (occurrence: None)
  Receive Date: 20140902
  Receipt Date: 20140902
  Transmission Date: 20150326
  Serious: Yes (Hospitalization)
  Sender: FDA-Public Use
  Company Number: None

PATIENT
  Age: 94 Year
  Sex: Male
  Weight: 60.4 kg

DRUGS (2)
  1. QUADRAMET [Suspect]
     Active Substance: SAMARIUM SM-153 LEXIDRONAM PENTASODIUM
     Indication: OSTEOSARCOMA METASTATIC
     Dosage: 603.7 MCI ONCE IV
     Route: 042
     Dates: start: 20140716
  2. QUADRAMET [Suspect]
     Active Substance: SAMARIUM SM-153 LEXIDRONAM PENTASODIUM
     Indication: OSTEOSARCOMA METASTATIC
     Dosage: 58.5 MCI ONCE IV
     Route: 042
     Dates: start: 20140709

REACTIONS (2)
  - Pleural effusion [None]
  - Venous thrombosis limb [None]

NARRATIVE: CASE EVENT DATE: 20140827
